FAERS Safety Report 10593949 (Version 1)
Quarter: 2014Q4

REPORT INFORMATION
  Report Type: Spontaneous
  Country: US (occurrence: US)
  Receive Date: 20141119
  Receipt Date: 20141119
  Transmission Date: 20150529
  Serious: Yes (Other)
  Sender: FDA-Public Use
  Company Number: US-BAYER-2014-168711

PATIENT
  Age: 58 Year
  Sex: Female

DRUGS (1)
  1. BETASERON [Suspect]
     Active Substance: INTERFERON BETA-1B
     Indication: MULTIPLE SCLEROSIS
     Dosage: 9.6 MIU, EVERY OTHER DAY (9.6 MILLIONS)
     Route: 058

REACTIONS (2)
  - Multiple sclerosis relapse [None]
  - Incorrect dose administered [None]

NARRATIVE: CASE EVENT DATE: 201410
